FAERS Safety Report 17228533 (Version 1)
Quarter: 2020Q1

REPORT INFORMATION
  Report Type: Spontaneous
  Country: US (occurrence: US)
  Receive Date: 20200102
  Receipt Date: 20200102
  Transmission Date: 20200409
  Serious: No
  Sender: FDA-Public Use
  Company Number: None

PATIENT
  Age: 34 Year
  Sex: Female
  Weight: 65.25 kg

DRUGS (5)
  1. CHAMOMILE TEA [Concomitant]
     Active Substance: MATRICARIA RECUTITA
  2. ROSE LAVENDER TEA [Concomitant]
  3. VITAMIN D [Concomitant]
     Active Substance: VITAMIN D NOS
  4. MICONAZOLE 1 [Suspect]
     Active Substance: MICONAZOLE NITRATE
     Indication: FUNGAL INFECTION
     Dosage: ?          QUANTITY:2 SUPPOSITORY(IES);OTHER FREQUENCY:ONCE (FOR SUPPOSI);?
     Route: 067
     Dates: start: 20191229, end: 20191231
  5. WOMENS DAILY MULTIVITAMIN [Concomitant]

REACTIONS (3)
  - Genital burning sensation [None]
  - Genital blister [None]
  - Genital rash [None]

NARRATIVE: CASE EVENT DATE: 20191230
